FAERS Safety Report 5879083-8 (Version None)
Quarter: 2008Q3

REPORT INFORMATION
  Report Type: 
  Country: None (occurrence: None)
  Receive Date: 20080912
  Receipt Date: 20080812
  Transmission Date: 20090109
  Serious: No
  Sender: FDA-Public Use
  Company Number: US-BAYER-200826988NA

PATIENT
  Sex: Female
  Weight: 100 kg

DRUGS (2)
  1. MIRENA [Suspect]
     Indication: CONTRACEPTION
     Route: 015
     Dates: start: 20080401
  2. DIAMOX [Concomitant]
     Indication: DIURETIC THERAPY

REACTIONS (6)
  - ABDOMINAL DISTENSION [None]
  - DYSPAREUNIA [None]
  - HYPOAESTHESIA [None]
  - PAIN [None]
  - PALPITATIONS [None]
  - PROCEDURAL PAIN [None]
